FAERS Safety Report 8995336 (Version 1)
Quarter: 2013Q1

REPORT INFORMATION
  Report Type: Spontaneous
  Country: US (occurrence: US)
  Receive Date: 20130102
  Receipt Date: 20130102
  Transmission Date: 20140127
  Serious: No
  Sender: FDA-Public Use
  Company Number: US-ASTRAZENECA-2008UW19349

PATIENT
  Sex: Female

DRUGS (3)
  1. PULMICORT RESPULES [Suspect]
     Route: 055
  2. SYMBICORT [Suspect]
     Indication: ASTHMA
     Route: 055
  3. PREDNISONE [Concomitant]

REACTIONS (5)
  - Visual impairment [Unknown]
  - Angiopathy [Unknown]
  - Dysphonia [Unknown]
  - Drug ineffective [Unknown]
  - Drug dose omission [Unknown]
